FAERS Safety Report 9123048 (Version 4)
Quarter: 2014Q2

REPORT INFORMATION
  Report Type: Spontaneous
  Country: US (occurrence: US)
  Receive Date: 20130115
  Receipt Date: 20140630
  Transmission Date: 20141212
  Serious: Yes (Hospitalization, Other)
  Sender: FDA-Public Use
  Company Number: US-009507513-1301USA005270

PATIENT
  Sex: Female
  Weight: 134.69 kg

DRUGS (5)
  1. NUVARING [Suspect]
     Indication: CONTRACEPTION
     Dosage: UNK
     Route: 067
     Dates: start: 200905
  2. NUVARING [Suspect]
     Dosage: UNK
     Route: 067
     Dates: start: 20091006, end: 200912
  3. PROVENTIL [Concomitant]
     Indication: ASTHMA
     Dosage: UNK
     Dates: start: 2004
  4. ADVAIR [Concomitant]
     Dosage: UNK
     Dates: start: 2004
  5. FLOVENT [Concomitant]
     Dosage: UNK
     Dates: start: 2004

REACTIONS (17)
  - Vena cava filter insertion [Unknown]
  - Pulmonary embolism [Unknown]
  - Coagulopathy [Unknown]
  - Deep vein thrombosis [Unknown]
  - Maternal exposure before pregnancy [Unknown]
  - Intracardiac thrombus [Unknown]
  - Microcytic anaemia [Unknown]
  - Menstruation irregular [Unknown]
  - Dysfunctional uterine bleeding [Unknown]
  - Vaginal haemorrhage [Unknown]
  - Oesophagitis [Unknown]
  - Constipation [Unknown]
  - Rhinitis allergic [Unknown]
  - Iron deficiency [Unknown]
  - Haematochezia [Unknown]
  - Joint injury [Unknown]
  - Cardiomegaly [Unknown]
